FAERS Safety Report 10235786 (Version 1)
Quarter: 2014Q2

REPORT INFORMATION
  Report Type: Spontaneous
  Country: ID (occurrence: ID)
  Receive Date: 20140613
  Receipt Date: 20140613
  Transmission Date: 20141212
  Serious: Yes (Other)
  Sender: FDA-Public Use
  Company Number: ID-PFIZER INC-2014159757

PATIENT
  Age: 35 Year
  Sex: Female

DRUGS (2)
  1. METHYLPREDNISOLONE SODIUM SUCCINATE [Suspect]
     Indication: SYSTEMIC LUPUS ERYTHEMATOSUS
     Dosage: 62.5 MG, 2X/DAY (EVERY 12 HOURS)
     Route: 042
  2. METHYLPREDNISOLONE [Suspect]
     Indication: SYSTEMIC LUPUS ERYTHEMATOSUS
     Dosage: 1 MG/KG BODY WEIGHT

REACTIONS (1)
  - Tuberculosis [Recovering/Resolving]
